FAERS Safety Report 9112282 (Version 1)
Quarter: 2013Q1

REPORT INFORMATION
  Report Type: Spontaneous
  Country: US (occurrence: US)
  Receive Date: 20130219
  Receipt Date: 20130219
  Transmission Date: 20140127
  Serious: No
  Sender: FDA-Public Use
  Company Number: US-BRISTOL-MYERS SQUIBB COMPANY-16700890

PATIENT
  Age: 50 Year
  Sex: Female

DRUGS (5)
  1. ORENCIA [Suspect]
     Indication: RHEUMATOID ARTHRITIS
     Dosage: LAST DATE OF INFUSION: 13JUN2012
     Route: 042
     Dates: start: 20120320
  2. VITAMINS [Concomitant]
     Dosage: LIVING GREEN VITAMINS
  3. VITAMIN D [Concomitant]
  4. VITAMIN B12 [Concomitant]
  5. PROBIOTICA [Concomitant]

REACTIONS (2)
  - Fatigue [Recovered/Resolved]
  - Nail disorder [Not Recovered/Not Resolved]
